FAERS Safety Report 9808052 (Version 3)
Quarter: 2014Q4

REPORT INFORMATION
  Report Type: Spontaneous
  Country: JP (occurrence: None)
  Receive Date: 20140108
  Receipt Date: 20141230
  Transmission Date: 20150529
  Serious: Yes (Other)
  Sender: FDA-Public Use
  Company Number: 1312-1645

PATIENT
  Age: 85 Year
  Sex: Male

DRUGS (2)
  1. EYLEA [Suspect]
     Active Substance: AFLIBERCEPT
     Indication: PRODUCT USED FOR UNKNOWN INDICATION
     Route: 031
  2. RANIBIZUMAB [Concomitant]
     Active Substance: RANIBIZUMAB

REACTIONS (2)
  - Retinal vein occlusion [None]
  - Intraocular pressure increased [None]

NARRATIVE: CASE EVENT DATE: 20131125
